FAERS Safety Report 9173319 (Version 1)
Quarter: 2013Q1

REPORT INFORMATION
  Report Type: Spontaneous
  Country: US (occurrence: None)
  Receive Date: 20130313
  Receipt Date: 20130313
  Transmission Date: 20140127
  Serious: No
  Sender: FDA-Public Use
  Company Number: AEUSA201200331

PATIENT
  Age: 57 Year
  Sex: Female
  Weight: 93.9 kg

DRUGS (1)
  1. PROLASTIN-C [Suspect]
     Indication: ALPHA-1 ANTI-TRYPSIN DEFICIENCY
     Dosage: 6210 MG; QW; IV
     Route: 042
     Dates: start: 201206

REACTIONS (4)
  - Sinusitis [None]
  - Nausea [None]
  - Vomiting [None]
  - Body temperature increased [None]
